FAERS Safety Report 14168899 (Version 1)
Quarter: 2017Q4

REPORT INFORMATION
  Report Type: Spontaneous
  Country: TR (occurrence: TR)
  Receive Date: 20171107
  Receipt Date: 20171107
  Transmission Date: 20180321
  Serious: Yes (Life-Threatening, Hospitalization)
  Sender: FDA-Public Use
  Company Number: TR-MYLANLABS-2017M1069304

PATIENT
  Age: 35 Year
  Sex: Male

DRUGS (1)
  1. CARBAMAZEPINE. [Suspect]
     Active Substance: CARBAMAZEPINE
     Indication: PRODUCT USE IN UNAPPROVED INDICATION
     Dosage: 100 TABLETS OF 400 MG CONTROLLED RELEASE
     Route: 048

REACTIONS (5)
  - Loss of consciousness [Recovering/Resolving]
  - Heart rate increased [Recovering/Resolving]
  - Respiratory rate increased [Recovering/Resolving]
  - Blood pressure decreased [Recovering/Resolving]
  - Overdose [Recovering/Resolving]
